FAERS Safety Report 7036436-2 (Version None)
Quarter: 2010Q4

REPORT INFORMATION
  Report Type: 
  Country: None (occurrence: None)
  Receive Date: 20101011
  Receipt Date: 20100928
  Transmission Date: 20110411
  Serious: Yes (Hospitalization)
  Sender: FDA-Public Use
  Company Number: US-BIOGENIDEC-2008BI034263

PATIENT
  Age: 60 Year
  Sex: Female

DRUGS (13)
  1. TYSABRI [Suspect]
     Indication: MULTIPLE SCLEROSIS
     Route: 042
     Dates: start: 20070202
  2. DIPHENHYDRAMINE [Concomitant]
     Indication: PRURITUS
  3. DIPHENHYDRAMINE [Concomitant]
     Indication: INSOMNIA
  4. METOCLOPRAMIDE [Concomitant]
     Indication: NAUSEA
     Route: 048
  5. BACLOFEN [Concomitant]
     Route: 048
  6. OS-CAL [Concomitant]
     Route: 048
  7. VITAMIN D [Concomitant]
     Route: 048
  8. PROGESTERONE [Concomitant]
  9. ESTROGEN [Concomitant]
     Route: 048
  10. AMANTADINE [Concomitant]
     Route: 048
  11. MIRTAZAPINE [Concomitant]
     Route: 048
  12. MULTI-VITAMIN [Concomitant]
     Route: 048
  13. IRON [Concomitant]
     Route: 048

REACTIONS (3)
  - BACK DISORDER [None]
  - BONE CYST [None]
  - VENOUS STENOSIS [None]
